FAERS Safety Report 8273105-5 (Version None)
Quarter: 2012Q2

REPORT INFORMATION
  Report Type: 
  Country: None (occurrence: None)
  Receive Date: 20120411
  Receipt Date: 20120404
  Transmission Date: 20120825
  Serious: Yes (Hospitalization, Other)
  Sender: FDA-Public Use
  Company Number: DE-UCBSA-009903

PATIENT
  Age: 29 Year
  Sex: Female
  Weight: 73 kg

DRUGS (5)
  1. LACOSAMIDE [Suspect]
     Dosage: 50MG MORNINGS AND MIDDAY, 100MG EVENINGS
     Dates: start: 20100323
  2. LEVETIRACETAM [Suspect]
     Indication: EPILEPSY
     Route: 048
     Dates: start: 20090101, end: 20090322
  3. LEVETIRACETAM [Suspect]
     Dosage: 500MG EVENINGS, 1000MG MORNINGS AND EVENINGS
     Route: 048
     Dates: end: 20100301
  4. LEVETIRACETAM [Suspect]
     Route: 048
     Dates: start: 20100323
  5. LACOSAMIDE [Suspect]
     Indication: EPILEPSY
     Route: 048
     Dates: start: 20090827, end: 20100322

REACTIONS (5)
  - PREGNANCY [None]
  - POST-TRAUMATIC NECK SYNDROME [None]
  - CONCUSSION [None]
  - ROAD TRAFFIC ACCIDENT [None]
  - CONVULSION [None]
